FAERS Safety Report 8320711-5 (Version None)
Quarter: 2012Q1

REPORT INFORMATION
  Report Type: 
  Country: None (occurrence: None)
  Receive Date: 20120315
  Receipt Date: 20110203
  Transmission Date: 20120608
  Serious: No
  Sender: FDA-Public Use
  Company Number: PHHY2011US09604

PATIENT

DRUGS (1)
  1. GILENYA [Suspect]

REACTIONS (8)
  - INSOMNIA [None]
  - FLUSHING [None]
  - MUSCULAR WEAKNESS [None]
  - HEADACHE [None]
  - MUSCLE SPASMS [None]
  - ABDOMINAL DISCOMFORT [None]
  - PYREXIA [None]
  - GAIT DISTURBANCE [None]
